FAERS Safety Report 9506958 (Version 3)
Quarter: 2013Q4

REPORT INFORMATION
  Report Type: Spontaneous
  Country: US (occurrence: US)
  Receive Date: 20130909
  Receipt Date: 20131001
  Transmission Date: 20140711
  Serious: Yes (Death)
  Sender: FDA-Public Use
  Company Number: US-AMGEN-USASP2013062810

PATIENT
  Age: 82 Year
  Sex: Male
  Weight: 82.09 kg

DRUGS (21)
  1. PROLIA [Suspect]
     Indication: BONE DISORDER
     Dosage: 60 MG, Q6MO
     Route: 058
     Dates: start: 20121023, end: 20121023
  2. CHEMOTHERAPEUTICS [Concomitant]
  3. PLAVIX [Concomitant]
     Dosage: 75 MG, QD
  4. NEXIUM                             /01479302/ [Concomitant]
     Dosage: 40 MG, QD
  5. SPIRIVA [Concomitant]
     Dosage: 2 PUFFS, QD
  6. CRESTOR [Concomitant]
     Dosage: 10 MG, QD
  7. STOOL SOFTENER [Concomitant]
     Dosage: PRN
  8. TYLENOL                            /00020001/ [Concomitant]
     Dosage: UNK UNK, QHS
  9. COENZYME Q10 [Concomitant]
     Dosage: UNK UNK, QD
  10. MUCINEX [Concomitant]
     Dosage: PRN
  11. SINGULAIR [Concomitant]
     Dosage: PRN
  12. VITAMIN B [Concomitant]
     Dosage: UNK UNK, QD
  13. CALCIUM + VIT D [Concomitant]
     Dosage: UNK UNK, BID
  14. PREDNISONE [Concomitant]
     Dosage: 10 MG, BID
  15. PROAIR                             /00139502/ [Concomitant]
     Dosage: UNK UNK, QID
  16. SYMBICORT [Concomitant]
     Dosage: 2 PUFFS, BID
  17. VITAMIN D                          /00107901/ [Concomitant]
     Dosage: 1000 MG, BID
  18. NORVASC [Concomitant]
     Dosage: 10 MG, QD
  19. LASIX                              /00032601/ [Concomitant]
     Dosage: PRN
  20. UROXATRAL [Concomitant]
     Dosage: UNK UNK, QHS, PRN
  21. OXYGEN [Concomitant]
     Dosage: QPM + PRN

REACTIONS (1)
  - Death [Fatal]
